FAERS Safety Report 10270797 (Version 1)
Quarter: 2014Q1

REPORT INFORMATION
  Report Type: Spontaneous
  Country: US (occurrence: None)
  Receive Date: 20140306
  Receipt Date: 20140306
  Transmission Date: 20141002
  Serious: Yes (Other)
  Sender: FDA-Public Use
  Company Number: 163-21880-13072775

PATIENT
  Age: 75 Year
  Sex: Female

DRUGS (8)
  1. REVLIMID (LENALIDOMIDE) (CAPSULES) [Suspect]
     Indication: PLASMA CELL MYELOMA
     Dosage: 25 MG, 21 IN 21 D, PO
     Route: 048
     Dates: start: 20120724, end: 201307
  2. CARVEDILOL (CARVEDILOL) (UNKNOWN) [Concomitant]
  3. DEXAMETHASONE (DEXAMETHASONE) (UNKNOWN) [Concomitant]
  4. DIGOXIN (DIGOXIN) (UNKNOWN) (DIGOXIN) [Concomitant]
  5. FUROSEMIDE (FUROSEMIDE) (UNKNOWN) [Concomitant]
  6. LETROZOLE (LETROZOLE) (UNKNOWN) [Concomitant]
  7. SPIRONOLACTONE (SPIRONOLACTONE) (UNKNOWN) [Concomitant]
  8. WARFARIN SODIUM (WARFARIN SODIUM) (UNKNOWN) [Concomitant]

REACTIONS (2)
  - Drug ineffective [None]
  - Fatigue [None]
